FAERS Safety Report 15353542 (Version 2)
Quarter: 2018Q3

REPORT INFORMATION
  Report Type: Spontaneous
  Country: US (occurrence: US)
  Receive Date: 20180905
  Receipt Date: 20180907
  Transmission Date: 20181010
  Serious: Yes (Other)
  Sender: FDA-Public Use
  Company Number: US-PFIZER INC-2018353798

PATIENT
  Age: 50 Year
  Sex: Female
  Weight: 68.48 kg

DRUGS (1)
  1. EFFEXOR XR [Suspect]
     Active Substance: VENLAFAXINE HYDROCHLORIDE
     Indication: HOT FLUSH
     Dosage: 150 MG, 1X/DAY
     Route: 048
     Dates: start: 2015

REACTIONS (17)
  - Seizure [Unknown]
  - Headache [Not Recovered/Not Resolved]
  - Muscular weakness [Unknown]
  - Impaired driving ability [Unknown]
  - Nausea [Not Recovered/Not Resolved]
  - Coordination abnormal [Unknown]
  - Tinnitus [Not Recovered/Not Resolved]
  - Loss of personal independence in daily activities [Unknown]
  - Depression [Unknown]
  - Drug dose omission [Unknown]
  - Paraesthesia [Unknown]
  - Personality disorder [Unknown]
  - Suicidal ideation [Unknown]
  - Feeling abnormal [Unknown]
  - Memory impairment [Not Recovered/Not Resolved]
  - Drug ineffective for unapproved indication [Unknown]
  - Fatigue [Not Recovered/Not Resolved]

NARRATIVE: CASE EVENT DATE: 201806
